FAERS Safety Report 5280247-5 (Version None)
Quarter: 2007Q1

REPORT INFORMATION
  Report Type: 
  Country: None (occurrence: None)
  Receive Date: 20070329
  Receipt Date: 20070323
  Transmission Date: 20070707
  Serious: Yes (Hospitalization, Other)
  Sender: FDA-Public Use
  Company Number: HQWYE620201JUN06

PATIENT
  Sex: Male
  Weight: 60 kg

DRUGS (5)
  1. TAZOCIN [Suspect]
     Indication: PNEUMONIA
     Route: 041
     Dates: start: 20060525, end: 20060529
  2. FLUTIDE DISKUS [Concomitant]
     Indication: ASTHMA
     Dosage: 200 MICROGRAMS DAILY
     Route: 055
     Dates: start: 20001017
  3. SPIRIVA [Concomitant]
     Indication: EMPHYSEMA
     Dosage: 18 MICROGRAMS DAILY
     Route: 055
     Dates: start: 20060407
  4. SEREVENT [Concomitant]
     Indication: ASTHMA
     Dosage: 50 MICROGRAMS DAILY
     Route: 055
     Dates: start: 20040217
  5. SEREVENT [Concomitant]
     Indication: EMPHYSEMA

REACTIONS (2)
  - DRUG INEFFECTIVE [None]
  - INTERSTITIAL LUNG DISEASE [None]
